FAERS Safety Report 11912112 (Version 1)
Quarter: 2016Q1

REPORT INFORMATION
  Report Type: Spontaneous
  Country: IN (occurrence: IN)
  Receive Date: 20160112
  Receipt Date: 20160112
  Transmission Date: 20160526
  Serious: Yes (Life-Threatening, Hospitalization)
  Sender: FDA-Public Use
  Company Number: IN-MYLANLABS-2016M1001085

PATIENT

DRUGS (2)
  1. BACLOFEN. [Suspect]
     Active Substance: BACLOFEN
     Indication: PRODUCT USED FOR UNKNOWN INDICATION
     Dosage: 60MG/DAY
     Route: 065
  2. BACLOFEN. [Suspect]
     Active Substance: BACLOFEN
     Dosage: 280 MG
     Route: 048

REACTIONS (7)
  - Suicide attempt [Recovered/Resolved]
  - Hypotonia [Recovering/Resolving]
  - Coma [Recovered/Resolved]
  - Intentional overdose [Recovered/Resolved]
  - Off label use [Recovering/Resolving]
  - Respiratory distress [Recovered/Resolved]
  - Hypotension [Recovering/Resolving]
